FAERS Safety Report 8094041-3 (Version None)
Quarter: 2012Q1

REPORT INFORMATION
  Report Type: 
  Country: None (occurrence: None)
  Receive Date: 20120131
  Receipt Date: 20120123
  Transmission Date: 20120608
  Serious: Yes (Other)
  Sender: FDA-Public Use
  Company Number: ZA-BRISTOL-MYERS SQUIBB COMPANY-15651763

PATIENT
  Age: 41 Year
  Sex: Male

DRUGS (8)
  1. AMITRIPTYLINE HCL [Concomitant]
     Indication: DIABETIC NEUROPATHY
     Route: 048
  2. BLINDED: SAXAGLIPTIN [Suspect]
     Indication: TYPE 2 DIABETES MELLITUS
     Dates: start: 20101209
  3. ASPIRIN [Concomitant]
  4. VITAMIN B COMPLEX CAP [Concomitant]
     Indication: DIABETIC NEUROPATHY
     Route: 048
  5. PYRIDOXINE HCL [Concomitant]
     Indication: DIABETIC NEUROPATHY
     Route: 048
  6. BLINDED: PLACEBO [Suspect]
     Indication: TYPE 2 DIABETES MELLITUS
     Dates: start: 20101209
  7. ACETAMINOPHEN [Concomitant]
     Route: 048
  8. ALLOPURINOL [Concomitant]
     Indication: GOUT
     Route: 048

REACTIONS (1)
  - PULMONARY TUBERCULOSIS [None]
